FAERS Safety Report 9853447 (Version 2)
Quarter: 2014Q1

REPORT INFORMATION
  Report Type: Spontaneous
  Country: CA (occurrence: CA)
  Receive Date: 20140129
  Receipt Date: 20140327
  Transmission Date: 20141002
  Serious: Yes (Other)
  Sender: FDA-Public Use
  Company Number: CA-PFIZER INC-2014021240

PATIENT
  Age: 58 Year
  Sex: Male

DRUGS (1)
  1. ZYVOXAM [Suspect]
     Dosage: 600 MG, 2X/DAY

REACTIONS (1)
  - Renal impairment [Unknown]
